FAERS Safety Report 18522994 (Version 1)
Quarter: 2020Q4

REPORT INFORMATION
  Report Type: Spontaneous
  Country: GB (occurrence: GB)
  Receive Date: 20201119
  Receipt Date: 20201119
  Transmission Date: 20210114
  Serious: Yes (Other)
  Sender: FDA-Public Use
  Company Number: GB-JNJFOC-20201128598

PATIENT
  Age: 60 Year
  Sex: Male
  Weight: 104 kg

DRUGS (4)
  1. CODEINE PHOSPHATE [Concomitant]
     Active Substance: CODEINE PHOSPHATE
     Dosage: 2 DOSAGE FORM, EVERY 4 HRS
     Route: 065
     Dates: start: 20200925
  2. ZAPAIN [Concomitant]
     Active Substance: ACETAMINOPHEN\CODEINE PHOSPHATE
     Dosage: 2 DOSAGE FORM
     Route: 065
     Dates: start: 20201015
  3. TRAMADOL HYDROCHLORIDE. [Suspect]
     Active Substance: TRAMADOL HYDROCHLORIDE
     Indication: PRODUCT USED FOR UNKNOWN INDICATION
     Dosage: 200 MILLIGRAM, 1/DAY
     Route: 065
  4. OMEPRAZOLE. [Concomitant]
     Active Substance: OMEPRAZOLE
     Indication: DYSPEPSIA
     Dosage: 1 DOSAGE FORM, 1/DAY
     Route: 065
     Dates: start: 20201006

REACTIONS (3)
  - Illness [Unknown]
  - Nausea [Unknown]
  - Sensory disturbance [Unknown]
